FAERS Safety Report 6462167-3 (Version None)
Quarter: 2009Q4

REPORT INFORMATION
  Report Type: 
  Country: None (occurrence: None)
  Receive Date: 20091130
  Receipt Date: 20091118
  Transmission Date: 20100525
  Serious: Yes (Hospitalization)
  Sender: FDA-Public Use
  Company Number: FR-PFIZER INC-2009303725

PATIENT
  Age: 29 Year
  Sex: Female

DRUGS (5)
  1. ATARAX [Suspect]
     Indication: DRUG TOXICITY
     Dosage: 32 TABLETS
     Route: 048
     Dates: start: 20091012, end: 20091012
  2. PAROXETINE [Suspect]
     Dosage: 28 TABLETS
     Route: 048
     Dates: start: 20091012, end: 20091012
  3. ESCITALOPRAM OXALATE [Suspect]
     Dosage: 32 TABLETS
     Route: 048
     Dates: start: 20091012, end: 20091012
  4. ZOLPIDEM [Suspect]
     Dosage: 12 TABLETS
     Route: 048
     Dates: start: 20091012, end: 20091012
  5. RIVOTRIL [Suspect]
     Dosage: 7 TABLETS
     Route: 048
     Dates: start: 20091012, end: 20091012

REACTIONS (6)
  - ALTERED STATE OF CONSCIOUSNESS [None]
  - CYTOLYTIC HEPATITIS [None]
  - OVERDOSE [None]
  - SINUS TACHYCARDIA [None]
  - SOMNOLENCE [None]
  - SUICIDE ATTEMPT [None]
